FAERS Safety Report 9627046 (Version 1)
Quarter: 2013Q4

REPORT INFORMATION
  Report Type: Spontaneous
  Country: US (occurrence: US)
  Receive Date: 20131016
  Receipt Date: 20131016
  Transmission Date: 20140711
  Serious: No
  Sender: FDA-Public Use
  Company Number: 2013SP002979

PATIENT
  Age: 18 Year
  Sex: Female
  Weight: 58 kg

DRUGS (2)
  1. LATUDA [Suspect]
     Indication: SCHIZOPHRENIA
     Route: 048
     Dates: start: 20130925, end: 2013
  2. LATUDA [Suspect]
     Indication: SCHIZOPHRENIA
     Route: 048
     Dates: start: 20130922, end: 20130924

REACTIONS (2)
  - Rash erythematous [Not Recovered/Not Resolved]
  - Amenorrhoea [Not Recovered/Not Resolved]
